FAERS Safety Report 5034271-8 (Version None)
Quarter: 2006Q2

REPORT INFORMATION
  Report Type: 
  Country: None (occurrence: None)
  Receive Date: 20060626
  Receipt Date: 20060609
  Transmission Date: 20061013
  Serious: Yes (Other)
  Sender: FDA-Public Use
  Company Number: JP-MERCK-0606USA02428

PATIENT
  Age: 83 Year
  Sex: Male
  Weight: 46 kg

DRUGS (10)
  1. PRIMAXIN [Suspect]
     Route: 042
     Dates: start: 20060604, end: 20060605
  2. CASODEX [Concomitant]
     Route: 048
     Dates: end: 20060530
  3. BUP-4 [Concomitant]
     Route: 048
     Dates: end: 20060530
  4. WARFARIN POTASSIUM [Concomitant]
     Route: 048
     Dates: end: 20060530
  5. SELOKEN [Concomitant]
     Route: 048
  6. LANIRAPID [Concomitant]
     Route: 048
  7. LISPINE [Concomitant]
     Route: 048
  8. ADALAT [Concomitant]
     Route: 048
  9. SEPAMIT R [Concomitant]
     Route: 048
  10. LASIX [Concomitant]
     Route: 048
     Dates: end: 20060530

REACTIONS (1)
  - LIVER DISORDER [None]
